FAERS Safety Report 20368537 (Version 3)
Quarter: 2022Q1

REPORT INFORMATION
  Report Type: Spontaneous
  Country: JP (occurrence: JP)
  Receive Date: 20220124
  Receipt Date: 20220221
  Transmission Date: 20220423
  Serious: Yes (Death, Other)
  Sender: FDA-Public Use
  Company Number: JP-NOVARTISPH-NVSJ2022JP001380

PATIENT
  Age: 81 Year
  Sex: Male
  Weight: 45.5 kg

DRUGS (5)
  1. GLYCOPYRROLATE\INDACATEROL\MOMETASONE FUROATE [Suspect]
     Active Substance: GLYCOPYRROLATE\INDACATEROL\MOMETASONE FUROATE
     Indication: Asthma
     Dosage: 1DF:INDACATEROL 150UG,GLYCOPYRRONIUM50UG,MOMETASONE80UG
     Route: 055
     Dates: start: 20220111
  2. LAFUTIDINE [Concomitant]
     Active Substance: LAFUTIDINE
     Indication: Gastritis
     Dosage: 10 MG, BID
     Route: 048
     Dates: start: 201407
  3. AMBROXOL HYDROCHLORIDE [Concomitant]
     Active Substance: AMBROXOL HYDROCHLORIDE
     Indication: Productive cough
     Dosage: 15 MG, TID
     Route: 048
     Dates: start: 201511
  4. ELOBIXIBAT [Concomitant]
     Active Substance: ELOBIXIBAT
     Indication: Constipation
     Dosage: 5 MG, BID
     Route: 048
     Dates: start: 20210126
  5. HERBALS [Concomitant]
     Active Substance: HERBALS
     Indication: Malaise
     Dosage: 2.5 MG, BID
     Route: 048
     Dates: start: 20211007

REACTIONS (1)
  - Sudden death [Fatal]

NARRATIVE: CASE EVENT DATE: 20220117
